FAERS Safety Report 9472465 (Version 2)
Quarter: 2013Q3

REPORT INFORMATION
  Report Type: Report from Study
  Country: BR (occurrence: BR)
  Receive Date: 20130823
  Receipt Date: 20130919
  Transmission Date: 20140515
  Serious: Yes (Other)
  Sender: FDA-Public Use
  Company Number: PHHY2013BR089507

PATIENT
  Age: 54 Year
  Sex: Male
  Weight: 77 kg

DRUGS (11)
  1. MYFORTIC [Suspect]
     Indication: RENAL TRANSPLANT
     Dosage: 720MG, BID
     Route: 048
     Dates: start: 20090506
  2. MYFORTIC [Suspect]
     Indication: PROPHYLAXIS AGAINST TRANSPLANT REJECTION
  3. EVEROLIMUS [Suspect]
     Indication: RENAL TRANSPLANT
     Dosage: 1MG, BID
     Route: 048
     Dates: start: 20090819
  4. EVEROLIMUS [Suspect]
     Indication: PROPHYLAXIS AGAINST TRANSPLANT REJECTION
  5. METICORTEN [Suspect]
     Indication: RENAL TRANSPLANT
     Dosage: 35MG, QD
     Route: 048
     Dates: start: 20090506
  6. METICORTEN [Suspect]
     Indication: PROPHYLAXIS AGAINST TRANSPLANT REJECTION
  7. PROGRAF [Suspect]
     Indication: RENAL TRANSPLANT
     Dosage: 5MG, BID
     Route: 048
     Dates: start: 20090519, end: 20090819
  8. PROGRAF [Suspect]
     Indication: PROPHYLAXIS AGAINST TRANSPLANT REJECTION
  9. THYMOGLOBULIN [Suspect]
     Indication: PROPHYLAXIS AGAINST TRANSPLANT REJECTION
     Dosage: 75MG, ACCORDING TO THE CD3 CELLS COUNT
     Route: 042
     Dates: start: 20090505, end: 20090510
  10. ANTAK [Concomitant]
     Indication: GASTRIC DISORDER
     Dosage: 150 MG, BID
     Route: 048
     Dates: start: 20090506
  11. ATORVASTATIN [Concomitant]
     Indication: DYSLIPIDAEMIA
     Dosage: 10 MG, QD
     Route: 048
     Dates: start: 20100320

REACTIONS (11)
  - Urinary bladder polyp [Unknown]
  - Metaplasia [Not Recovered/Not Resolved]
  - Urethral fistula [Recovering/Resolving]
  - Cystitis [Not Recovered/Not Resolved]
  - Adenocarcinoma [Recovered/Resolved]
  - Cytomegalovirus infection [Recovered/Resolved]
  - Pyrexia [Recovered/Resolved]
  - Diarrhoea [Recovered/Resolved]
  - Renal tubular disorder [Recovered/Resolved]
  - Blood creatinine increased [Unknown]
  - Angiopathy [Unknown]
